FAERS Safety Report 9382757 (Version 2)
Quarter: 2013Q3

REPORT INFORMATION
  Report Type: Spontaneous
  Country: US (occurrence: US)
  Receive Date: 20130703
  Receipt Date: 20130729
  Transmission Date: 20140515
  Serious: Yes (Other)
  Sender: FDA-Public Use
  Company Number: US-009507513-1306USA013838

PATIENT
  Sex: Female
  Weight: 87.4 kg

DRUGS (1)
  1. JANUVIA [Suspect]
     Indication: DIABETES MELLITUS
     Dosage: TOTAL DAILY DOSE 100 MG, QD
     Route: 048
     Dates: start: 20130114, end: 20130506

REACTIONS (2)
  - Pancreatitis [Recovering/Resolving]
  - Pancreatitis relapsing [Not Recovered/Not Resolved]
